FAERS Safety Report 12587740 (Version 1)
Quarter: 2016Q3

REPORT INFORMATION
  Report Type: Report from Study
  Country: CO (occurrence: CO)
  Receive Date: 20160725
  Receipt Date: 20160725
  Transmission Date: 20161109
  Serious: Yes (Other)
  Sender: FDA-Public Use
  Company Number: CO-REGENERON PHARMACEUTICALS, INC.-2016-19659

PATIENT

DRUGS (1)
  1. EYLEA [Suspect]
     Active Substance: AFLIBERCEPT
     Indication: DIABETIC RETINAL OEDEMA
     Dosage: 1 DF, Q1MON (TOTAL NUMBER OF INJECTIONS UNSPECIFIED)
     Dates: start: 20160520

REACTIONS (1)
  - Eye laser surgery [Recovered/Resolved]

NARRATIVE: CASE EVENT DATE: 20160707
